FAERS Safety Report 8813662 (Version 4)
Quarter: 2012Q4

REPORT INFORMATION
  Report Type: 
  Country: JP (occurrence: JP)
  Receive Date: 20120927
  Receipt Date: 20121218
  Transmission Date: 20130627
  Serious: Yes (Other)
  Sender: FDA-Public Use
  Company Number: JP-PFIZER INC-2012236905

PATIENT

DRUGS (2)
  1. JZOLOFT [Suspect]
     Indication: DEPRESSION
     Dosage: 25 mg, 2x/day (in the morning and evening)
     Route: 048
     Dates: start: 20110906
  2. RIFAMPICIN [Interacting]
     Indication: TUBERCULOSIS
     Dosage: UNK
     Dates: start: 20120908, end: 20120926

REACTIONS (3)
  - Tuberculosis [Unknown]
  - Drug interaction [Unknown]
  - Therapeutic response decreased [Recovered/Resolved]
